FAERS Safety Report 7100715-0 (Version None)
Quarter: 2010Q4

REPORT INFORMATION
  Report Type: 
  Country: None (occurrence: None)
  Receive Date: 20101113
  Receipt Date: 20100311
  Transmission Date: 20110411
  Serious: No
  Sender: FDA-Public Use
  Company Number: US-ALLERGAN-1002844US

PATIENT
  Age: 43 Year
  Sex: Male

DRUGS (1)
  1. BOTOXA? [Suspect]
     Indication: MUSCLE SPASMS
     Dosage: UNK
     Route: 030
     Dates: start: 20090802, end: 20090802

REACTIONS (1)
  - DRUG INEFFECTIVE [None]
